FAERS Safety Report 5994943-5 (Version None)
Quarter: 2008Q4

REPORT INFORMATION
  Report Type: 
  Country: None (occurrence: None)
  Receive Date: 20081212
  Receipt Date: 20081014
  Transmission Date: 20090506
  Serious: No
  Sender: FDA-Public Use
  Company Number: US-ABBOTT-08P-163-0477149-00

PATIENT
  Sex: Female

DRUGS (14)
  1. HUMIRA [Suspect]
     Indication: CROHN'S DISEASE
     Dosage: STARTING DOSE
     Dates: start: 20080620
  2. HUMIRA [Suspect]
     Dosage: STARTING DOSE
  3. HUMIRA [Suspect]
  4. PHENYTOIN [Concomitant]
     Indication: CONVULSION
     Route: 048
  5. UNKNOWN ANESTHESIA [Concomitant]
     Indication: DENTAL CARE
     Dates: start: 20080828
  6. LORAZEPAM [Concomitant]
     Indication: MUSCLE SPASMS
     Route: 048
     Dates: start: 20080831
  7. AZATHIOPRINE [Concomitant]
     Indication: DRUG USE FOR UNKNOWN INDICATION
  8. AZATHIOPRINE [Concomitant]
  9. DICLOFENAC [Concomitant]
     Indication: ARTHRITIS
     Dates: start: 20060101
  10. QUETIAPINE FUMARATE [Concomitant]
     Indication: BIPOLAR DISORDER
     Dates: start: 20060101
  11. ROSERUM [Concomitant]
     Indication: INSOMNIA
     Route: 048
  12. PSYCHOBIAZAPRINE [Concomitant]
     Indication: DRUG USE FOR UNKNOWN INDICATION
     Route: 048
  13. TRAMADOL HCL [Concomitant]
     Indication: PAIN
     Route: 048
  14. CHOLESTYRAMINE [Concomitant]
     Indication: CROHN'S DISEASE
     Route: 048

REACTIONS (12)
  - ABDOMINAL PAIN UPPER [None]
  - AMNESIA [None]
  - CONJUNCTIVITIS INFECTIVE [None]
  - CONTUSION [None]
  - DENTAL CARIES [None]
  - FATIGUE [None]
  - GRANULOMA SKIN [None]
  - INFLAMMATION [None]
  - MUSCLE SPASMS [None]
  - OEDEMA PERIPHERAL [None]
  - RASH [None]
  - SEASONAL ALLERGY [None]
